FAERS Safety Report 9236689 (Version 2)
Quarter: 2013Q2

REPORT INFORMATION
  Report Type: Spontaneous
  Country: US (occurrence: US)
  Receive Date: 20130417
  Receipt Date: 20130424
  Transmission Date: 20140414
  Serious: Yes (Other)
  Sender: FDA-Public Use
  Company Number: US-ROCHE-1214186

PATIENT
  Age: 11 Year
  Sex: Male
  Weight: 37.23 kg

DRUGS (2)
  1. TAMIFLU [Suspect]
     Indication: INFLUENZA
     Route: 048
     Dates: start: 20130411, end: 20130412
  2. TYLENOL [Concomitant]
     Indication: PYREXIA

REACTIONS (10)
  - Angina pectoris [Recovered/Resolved]
  - Abdominal pain upper [Recovered/Resolved]
  - Chest discomfort [Recovered/Resolved]
  - Orthopnoea [Recovered/Resolved]
  - Agitation [Recovered/Resolved]
  - Anxiety [Unknown]
  - Chills [Recovered/Resolved]
  - Influenza [Not Recovered/Not Resolved]
  - Pain [Not Recovered/Not Resolved]
  - Fatigue [Not Recovered/Not Resolved]
